FAERS Safety Report 7112277-2 (Version None)
Quarter: 2010Q4

REPORT INFORMATION
  Report Type: 
  Country: None (occurrence: None)
  Receive Date: 20101119
  Receipt Date: 20100521
  Transmission Date: 20110411
  Serious: No
  Sender: FDA-Public Use
  Company Number: A0860867A

PATIENT
  Age: 65 Year
  Sex: Male

DRUGS (6)
  1. AVODART [Suspect]
     Indication: BENIGN PROSTATIC HYPERPLASIA
     Dosage: 1CAP PER DAY
     Route: 048
     Dates: start: 20090301
  2. FLOMAX [Concomitant]
  3. LOTENSIN [Concomitant]
  4. TOPROL-XL [Concomitant]
  5. PRILOSEC [Concomitant]
  6. ASPIRIN [Concomitant]

REACTIONS (3)
  - ERECTILE DYSFUNCTION [None]
  - PRURITUS [None]
  - RASH [None]
